FAERS Safety Report 7251726-6 (Version None)
Quarter: 2011Q1

REPORT INFORMATION
  Report Type: 
  Country: None (occurrence: None)
  Receive Date: 20110128
  Receipt Date: 20110119
  Transmission Date: 20110831
  Serious: Yes (Disabling, Other)
  Sender: FDA-Public Use
  Company Number: US-MERCK-1004USA04198

PATIENT
  Age: 59 Year
  Sex: Female

DRUGS (2)
  1. FOSAMAX PLUS D [Suspect]
     Indication: OSTEOPENIA
     Route: 048
     Dates: start: 20070122, end: 20081001
  2. FOSAMAX [Suspect]
     Indication: OSTEOPENIA
     Route: 048
     Dates: start: 20030101, end: 20081001

REACTIONS (49)
  - DYSPNOEA [None]
  - BRONCHITIS [None]
  - CARDIAC DISORDER [None]
  - CERVICAL SPINAL STENOSIS [None]
  - OSTEOPOROSIS [None]
  - TOOTH FRACTURE [None]
  - EDENTULOUS [None]
  - FISTULA DISCHARGE [None]
  - OSTEONECROSIS OF JAW [None]
  - OSTEOMYELITIS [None]
  - BONE DENSITY DECREASED [None]
  - PALPITATIONS [None]
  - MUMPS [None]
  - ABDOMINAL DISCOMFORT [None]
  - INFECTIOUS MONONUCLEOSIS [None]
  - CERVICOBRACHIAL SYNDROME [None]
  - PERIODONTITIS [None]
  - DEPRESSION [None]
  - GINGIVAL RECESSION [None]
  - ADVERSE DRUG REACTION [None]
  - ULCER [None]
  - MEASLES [None]
  - BACK PAIN [None]
  - IMPAIRED HEALING [None]
  - ANXIETY [None]
  - HYPERTENSION [None]
  - CARDITIS [None]
  - SPINAL OSTEOARTHRITIS [None]
  - PRIMARY SEQUESTRUM [None]
  - TOOTH ABSCESS [None]
  - ARTHRALGIA [None]
  - JOINT INSTABILITY [None]
  - COLON ADENOMA [None]
  - MITRAL VALVE PROLAPSE [None]
  - INSOMNIA [None]
  - HAEMORRHOIDS [None]
  - BLOOD PRESSURE DECREASED [None]
  - COLONIC POLYP [None]
  - SPINAL COLUMN STENOSIS [None]
  - HYPOTENSION [None]
  - JAW DISORDER [None]
  - ABSCESS [None]
  - CHEST DISCOMFORT [None]
  - PNEUMONIA [None]
  - OSTEOARTHRITIS [None]
  - MIGRAINE [None]
  - MELANOSIS COLI [None]
  - SENSITIVITY OF TEETH [None]
  - FOOT FRACTURE [None]
